FAERS Safety Report 7006033-3 (Version None)
Quarter: 2010Q3

REPORT INFORMATION
  Report Type: 
  Country: None (occurrence: None)
  Receive Date: 20100921
  Receipt Date: 20100914
  Transmission Date: 20110219
  Serious: Yes (Hospitalization)
  Sender: FDA-Public Use
  Company Number: US-GILEAD-2010-0031893

PATIENT
  Sex: Male

DRUGS (10)
  1. LETAIRIS [Suspect]
     Indication: PULMONARY ARTERIAL HYPERTENSION
     Route: 048
  2. TYVASO [Concomitant]
  3. DIGOXIN [Concomitant]
  4. INSPRA [Concomitant]
  5. WARFARIN SODIUM [Concomitant]
  6. RYTHMOL [Concomitant]
  7. BENAZEPRIL HYDROCHLORIDE AND HYDROCHLOROTHIAZIDE [Concomitant]
  8. CENTRUM [Concomitant]
  9. SIMVASTATIN [Concomitant]
  10. OMEPRAZOLE [Concomitant]

REACTIONS (2)
  - ATRIAL FLUTTER [None]
  - CARDIAC MURMUR [None]
